FAERS Safety Report 4927818-0 (Version None)
Quarter: 2006Q1

REPORT INFORMATION
  Report Type: 
  Country: None (occurrence: None)
  Receive Date: 20060228
  Receipt Date: 20050627
  Transmission Date: 20060701
  Serious: Yes (Hospitalization)
  Sender: FDA-Public Use
  Company Number: FR-BRISTOL-MYERS SQUIBB COMPANY-13051784

PATIENT
  Age: 72 Year
  Sex: Female
  Weight: 50 kg

DRUGS (4)
  1. REYATAZ [Suspect]
     Indication: HIV INFECTION
     Route: 048
     Dates: start: 20040424
  2. NORVIR [Concomitant]
     Dates: start: 20040424
  3. EPIVIR [Concomitant]
     Dates: start: 19980101
  4. VIREAD [Concomitant]
     Dates: start: 20020204

REACTIONS (2)
  - BLOOD BILIRUBIN INCREASED [None]
  - CHOLELITHIASIS [None]
